FAERS Safety Report 7115308-9 (Version None)
Quarter: 2010Q4

REPORT INFORMATION
  Report Type: 
  Country: None (occurrence: None)
  Receive Date: 20101122
  Receipt Date: 20101114
  Transmission Date: 20110411
  Serious: Yes (Other)
  Sender: FDA-Public Use
  Company Number: US-US-EMD SERONO, INC.-231192K09USA

PATIENT
  Sex: Female
  Weight: 62 kg

DRUGS (2)
  1. REBIF [Suspect]
     Indication: MULTIPLE SCLEROSIS
     Route: 058
     Dates: start: 20080901, end: 20090127
  2. REBIF [Suspect]
     Dates: start: 20090926

REACTIONS (3)
  - BREAST CANCER [None]
  - LOSS OF CONSCIOUSNESS [None]
  - METASTASES TO LYMPH NODES [None]
